FAERS Safety Report 6430788-X (Version None)
Quarter: 2009Q4

REPORT INFORMATION
  Report Type: 
  Country: None (occurrence: None)
  Receive Date: 20091105
  Receipt Date: 20091105
  Transmission Date: 20100525
  Serious: No
  Sender: FDA-Public Use
  Company Number: None

PATIENT
  Sex: Female
  Weight: 68.0396 kg

DRUGS (1)
  1. ACTONEL [Suspect]
     Indication: BONE DENSITY DECREASED
     Dosage: 1 MONTHLY PO
     Route: 048
     Dates: start: 20091102, end: 20091102

REACTIONS (2)
  - DIARRHOEA [None]
  - VOMITING [None]
